FAERS Safety Report 6463084-5 (Version None)
Quarter: 2009Q4

REPORT INFORMATION
  Report Type: 
  Country: None (occurrence: None)
  Receive Date: 20091124
  Receipt Date: 20091112
  Transmission Date: 20100525
  Serious: Yes (Other)
  Sender: FDA-Public Use
  Company Number: 235671K09USA

PATIENT
  Age: 50 Year
  Sex: Female

DRUGS (7)
  1. REBIF [Suspect]
     Indication: MULTIPLE SCLEROSIS
     Dosage: 44 MCG, 3 IN 1 WEEKS, SUBCUTANEOUS
     Route: 058
     Dates: start: 20081117, end: 20090515
  2. LEVOTHYROXINE (LEVOTHYROXINE /00068001/) [Concomitant]
  3. ATENOLOL [Concomitant]
  4. ZOLOFT [Concomitant]
  5. ALEVE [Concomitant]
  6. METOPROLOL (METOPROLOL /00376901/) [Concomitant]
  7. OCELLA (ORAL CONTRACEPTIVE NOS) [Concomitant]

REACTIONS (6)
  - ALANINE AMINOTRANSFERASE INCREASED [None]
  - ASPARTATE AMINOTRANSFERASE INCREASED [None]
  - BLOOD ALKALINE PHOSPHATASE INCREASED [None]
  - FAECES PALE [None]
  - NAUSEA [None]
  - URINE COLOUR ABNORMAL [None]
